FAERS Safety Report 18101516 (Version 2)
Quarter: 2021Q2

REPORT INFORMATION
  Report Type: Spontaneous
  Country: US (occurrence: US)
  Receive Date: 20200801
  Receipt Date: 20210629
  Transmission Date: 20210717
  Serious: No
  Sender: FDA-Public Use
  Company Number: US-TEVA-2020-US-1808618

PATIENT
  Age: 28 Year
  Sex: Female

DRUGS (1)
  1. COPAXONE [Suspect]
     Active Substance: GLATIRAMER ACETATE
     Indication: MULTIPLE SCLEROSIS
     Route: 058
     Dates: start: 20150325

REACTIONS (3)
  - Maternal exposure during pregnancy [Unknown]
  - Product dose omission issue [Unknown]
  - Live birth [Unknown]

NARRATIVE: CASE EVENT DATE: 20200710
